FAERS Safety Report 5609124-4 (Version None)
Quarter: 2008Q1

REPORT INFORMATION
  Report Type: 
  Country: None (occurrence: None)
  Receive Date: 20080131
  Receipt Date: 20080129
  Transmission Date: 20080703
  Serious: Yes (Other)
  Sender: FDA-Public Use
  Company Number: US-ASTRAZENECA-2007UW16415

PATIENT
  Age: 65 Year
  Sex: Male

DRUGS (6)
  1. CRESTOR [Suspect]
     Route: 048
     Dates: start: 20040201, end: 20061201
  2. NASONEX [Concomitant]
  3. FISH OIL [Concomitant]
  4. EZETIMIBE [Concomitant]
  5. FLAXSEED OIL [Concomitant]
  6. MULTIPLE VITAMIN INJECTION [Concomitant]

REACTIONS (1)
  - MUSCLE INJURY [None]
